FAERS Safety Report 9210339 (Version 2)
Quarter: 2013Q2

REPORT INFORMATION
  Report Type: Report from Study
  Country: PL (occurrence: PL)
  Receive Date: 20130404
  Receipt Date: 20130415
  Transmission Date: 20140414
  Serious: Yes (Hospitalization)
  Sender: FDA-Public Use
  Company Number: PL-ROCHE-1205026

PATIENT
  Age: 54 Year
  Sex: Female
  Weight: 107 kg

DRUGS (4)
  1. TRASTUZUMAB [Suspect]
     Indication: BREAST CANCER METASTATIC
     Dosage: THE LAST DOSE PRIOR TO THE EVENT WAS RECEIVED ON 11/FEB/2013
     Route: 042
     Dates: start: 20100129
  2. TERTENSIF SR [Concomitant]
     Route: 065
     Dates: start: 20050915
  3. ELTROXIN [Concomitant]
     Route: 065
     Dates: start: 19920615
  4. PERTUZUMAB [Suspect]
     Indication: BREAST CANCER METASTATIC
     Dosage: THE LAST DOSE PRIOR TO THE EVENT WAS RECEIVED ON 11/FEB/2013
     Route: 042
     Dates: start: 20100128

REACTIONS (1)
  - Soft tissue infection [Recovered/Resolved with Sequelae]
